FAERS Safety Report 6193238-7 (Version None)
Quarter: 2009Q2

REPORT INFORMATION
  Report Type: 
  Country: None (occurrence: None)
  Receive Date: 20090518
  Receipt Date: 20090508
  Transmission Date: 20091009
  Serious: Yes (Death, Hospitalization)
  Sender: FDA-Public Use
  Company Number: A0784437A

PATIENT
  Age: 70 Year
  Sex: Male
  Weight: 95.5 kg

DRUGS (10)
  1. AVANDIA [Suspect]
     Indication: DIABETES MELLITUS
     Dosage: 8MG PER DAY
     Route: 048
     Dates: start: 20000101, end: 20070325
  2. GLUCOPHAGE [Concomitant]
  3. PRANDIN [Concomitant]
  4. AMARYL [Concomitant]
  5. MICROZIDE [Concomitant]
  6. LIPITOR [Concomitant]
  7. TRICOR [Concomitant]
  8. CLARINEX [Concomitant]
  9. ASPIRIN [Concomitant]
  10. VITAMIN B COMPLEX CAP [Concomitant]

REACTIONS (3)
  - CARDIAC FAILURE [None]
  - MACULAR OEDEMA [None]
  - MYOCARDIAL INFARCTION [None]
